FAERS Safety Report 7406094-3 (Version None)
Quarter: 2011Q2

REPORT INFORMATION
  Report Type: 
  Country: None (occurrence: None)
  Receive Date: 20110411
  Receipt Date: 20110404
  Transmission Date: 20111010
  Serious: Yes (Hospitalization)
  Sender: FDA-Public Use
  Company Number: US-SANOFI-AVENTIS-2011SA021437

PATIENT
  Age: 85 Year
  Sex: Male

DRUGS (10)
  1. POTASSIUM CHLORIDE [Concomitant]
     Indication: SUPPLEMENTATION THERAPY
  2. LASIX [Suspect]
     Indication: FLUID RETENTION
     Route: 065
  3. MICARDIS [Suspect]
     Route: 048
     Dates: start: 20110101
  4. PLAVIX [Concomitant]
  5. CELEBREX [Concomitant]
     Indication: ARTHRITIS
  6. MICARDIS [Suspect]
     Route: 048
     Dates: start: 20110201, end: 20110301
  7. CARVEDILOL [Suspect]
     Route: 065
  8. LEVOTHYROXINE [Concomitant]
     Indication: THYROID DISORDER
  9. FAMOTIDINE [Concomitant]
  10. LIPITOR [Concomitant]

REACTIONS (1)
  - LOSS OF CONSCIOUSNESS [None]
